FAERS Safety Report 15613746 (Version 2)
Quarter: 2019Q1

REPORT INFORMATION
  Report Type: Spontaneous
  Country: JP (occurrence: JP)
  Receive Date: 20181113
  Receipt Date: 20190110
  Transmission Date: 20190417
  Serious: Yes (Hospitalization, Other)
  Sender: FDA-Public Use
  Company Number: JP-TEVA-2018-JP-974004

PATIENT
  Age: 40 Year
  Sex: Female

DRUGS (3)
  1. BETAMETHASONE. [Interacting]
     Active Substance: BETAMETHASONE
     Dosage: DOSE DOUBLED FOR ONE MONTH
     Route: 045
  2. BETAMETHASONE. [Interacting]
     Active Substance: BETAMETHASONE
     Indication: CHRONIC SINUSITIS
     Dosage: INITIAL DOSE NOT STATED
     Route: 045
  3. CLARITHROMYCIN. [Suspect]
     Active Substance: CLARITHROMYCIN
     Indication: CHRONIC SINUSITIS
     Route: 065

REACTIONS (3)
  - Cushing^s syndrome [Recovered/Resolved]
  - Drug interaction [Recovered/Resolved]
  - Intentional product use issue [Unknown]
